FAERS Safety Report 7393163-X (Version None)
Quarter: 2011Q2

REPORT INFORMATION
  Report Type: 
  Country: None (occurrence: None)
  Receive Date: 20110404
  Receipt Date: 20110331
  Transmission Date: 20111010
  Serious: Yes (Life-Threatening, Hospitalization)
  Sender: FDA-Public Use
  Company Number: CN-BAYER-2011-027648

PATIENT
  Age: 58 Year
  Sex: Male
  Weight: 61 kg

DRUGS (1)
  1. ULTRAVIST 150 [Suspect]
     Indication: ANGIOGRAM
     Dosage: 100 ML, ONCE
     Dates: start: 20110331, end: 20110331

REACTIONS (6)
  - CYANOSIS [None]
  - VOMITING [None]
  - RASH [None]
  - DYSPNOEA [None]
  - NAUSEA [None]
  - ASPHYXIA [None]
